FAERS Safety Report 9743746 (Version 1)
Quarter: 2013Q4

REPORT INFORMATION
  Report Type: Spontaneous
  Country: US (occurrence: US)
  Receive Date: 20131210
  Receipt Date: 20131210
  Transmission Date: 20140711
  Serious: No
  Sender: FDA-Public Use
  Company Number: US-BIOGENIDEC-2013BI095178

PATIENT
  Age: 61 Year
  Sex: Female

DRUGS (12)
  1. TECFIDERA [Suspect]
     Indication: MULTIPLE SCLEROSIS
     Route: 048
     Dates: start: 20130626
  2. TECFIDERA [Suspect]
     Indication: MULTIPLE SCLEROSIS
     Route: 048
  3. AVONEX [Concomitant]
     Indication: MULTIPLE SCLEROSIS
     Route: 030
     Dates: start: 19980901
  4. AMPYRA [Concomitant]
  5. BUPROPION [Concomitant]
  6. FISH OIL [Concomitant]
  7. HYDROCHLOROTHIAZIDE [Concomitant]
  8. LOSARTAN [Concomitant]
  9. PROPRANOLOL [Concomitant]
  10. VITAMIN B-12 [Concomitant]
  11. VITAMIN C [Concomitant]
  12. VITAMIN D [Concomitant]

REACTIONS (6)
  - Decreased appetite [Unknown]
  - Weight decreased [Unknown]
  - Vomiting [Recovered/Resolved with Sequelae]
  - Flushing [Recovered/Resolved]
  - Diarrhoea [Recovered/Resolved]
  - Dyspepsia [Unknown]
